FAERS Safety Report 4912008-8 (Version None)
Quarter: 2006Q1

REPORT INFORMATION
  Report Type: 
  Country: None (occurrence: None)
  Receive Date: 20060215
  Receipt Date: 20060209
  Transmission Date: 20060701
  Serious: Yes (Hospitalization)
  Sender: FDA-Public Use
  Company Number: FR-BRISTOL-MYERS SQUIBB COMPANY-13279484

PATIENT
  Age: 75 Year
  Sex: Male

DRUGS (5)
  1. ELISOR [Suspect]
     Indication: HYPERCHOLESTEROLAEMIA
     Route: 048
  2. SOTALEX TABS [Suspect]
     Indication: ARRHYTHMIA
     Route: 048
  3. MOPRAL [Suspect]
     Indication: OESOPHAGITIS
  4. PLAVIX [Suspect]
     Route: 048
  5. DIALGIREX [Suspect]
     Indication: ARTHRALGIA

REACTIONS (1)
  - PSEUDO LYMPHOMA [None]
